FAERS Safety Report 26066873 (Version 1)
Quarter: 2025Q4

REPORT INFORMATION
  Report Type: Spontaneous
  Country: US (occurrence: US)
  Receive Date: 20251119
  Receipt Date: 20251119
  Transmission Date: 20260118
  Serious: No
  Sender: BIOGEN
  Company Number: US-BIOGEN-2025BI01304855

PATIENT
  Age: 32 Year
  Sex: Female

DRUGS (3)
  1. TYSABRI [Suspect]
     Active Substance: NATALIZUMAB
     Indication: Multiple sclerosis
     Dosage: DOSAGE TEXT:INFUSED OVER 1 HOUR
     Dates: start: 20250416
  2. TYSABRI [Suspect]
     Active Substance: NATALIZUMAB
     Dosage: DOSAGE TEXT:INFUSED OVER 1 HOUR
     Dates: start: 20220906, end: 20240506
  3. TYSABRI [Suspect]
     Active Substance: NATALIZUMAB
     Dosage: DOSAGE TEXT:INFUSED OVER 1 HOUR
     Dates: start: 20180904, end: 20210308

REACTIONS (3)
  - Maternal exposure during pregnancy [Recovered/Resolved]
  - Hypersensitivity [Recovered/Resolved]
  - Hypoaesthesia [Recovered/Resolved]
